FAERS Safety Report 23057467 (Version 1)
Quarter: 2023Q4

REPORT INFORMATION
  Report Type: Spontaneous
  Country: US (occurrence: US)
  Receive Date: 20231012
  Receipt Date: 20231012
  Transmission Date: 20240109
  Serious: Yes (Other)
  Sender: FDA-Public Use
  Company Number: US-GLAXOSMITHKLINE-US2023137435

PATIENT

DRUGS (1)
  1. TRELEGY ELLIPTA [Suspect]
     Active Substance: FLUTICASONE FUROATE\UMECLIDINIUM BROMIDE\VILANTEROL TRIFENATATE
     Indication: Chronic obstructive pulmonary disease
     Dosage: UNK, 200-62.5-SM MCG
     Dates: start: 202010

REACTIONS (3)
  - Neoplasm malignant [Not Recovered/Not Resolved]
  - Papilloma viral infection [Unknown]
  - Pustule [Unknown]

NARRATIVE: CASE EVENT DATE: 20230501
